FAERS Safety Report 9925207 (Version 1)
Quarter: 2014Q1

REPORT INFORMATION
  Report Type: Spontaneous
  Country: DK (occurrence: DK)
  Receive Date: 20140226
  Receipt Date: 20140226
  Transmission Date: 20141002
  Serious: Yes (Other)
  Sender: FDA-Public Use
  Company Number: DK-PFIZER INC-2014050562

PATIENT
  Sex: 0

DRUGS (1)
  1. XALKORI [Suspect]

REACTIONS (1)
  - Renal impairment [Unknown]
